FAERS Safety Report 7385065-X (Version None)
Quarter: 2011Q1

REPORT INFORMATION
  Report Type: 
  Country: None (occurrence: None)
  Receive Date: 20110330
  Receipt Date: 20110303
  Transmission Date: 20110831
  Serious: No
  Sender: FDA-Public Use
  Company Number: US-B.I. PHARMACEUTICALS,INC./RIDGEFIELD-2011-BP-06327BP

PATIENT
  Sex: Male

DRUGS (7)
  1. FUROSEMIDE [Concomitant]
     Route: 048
  2. PRADAXA [Suspect]
     Indication: ATRIAL FIBRILLATION
     Dosage: 300 MG
     Route: 048
     Dates: start: 20110101
  3. PRIMIDONE [Concomitant]
     Indication: ESSENTIAL TREMOR
     Route: 048
  4. HYTRIN [Concomitant]
     Indication: BENIGN PROSTATIC HYPERPLASIA
     Dosage: 5 MG
     Route: 048
  5. CARDIZEM [Concomitant]
     Indication: BLOOD CHOLESTEROL INCREASED
     Dosage: 300 MG
     Route: 048
  6. KLOR-CON [Concomitant]
     Route: 048
  7. ZOCOR [Concomitant]
     Indication: BLOOD CHOLESTEROL INCREASED
     Dosage: 20 MG
     Route: 048

REACTIONS (4)
  - GAIT DISTURBANCE [None]
  - BALANCE DISORDER [None]
  - TREMOR [None]
  - NERVOUSNESS [None]
